FAERS Safety Report 9688316 (Version 2)
Quarter: 2013Q4

REPORT INFORMATION
  Report Type: Spontaneous
  Country: US (occurrence: None)
  Receive Date: 20131112
  Receipt Date: 20131126
  Transmission Date: 20140711
  Serious: Yes (Hospitalization, Other)
  Sender: FDA-Public Use
  Company Number: ADR-2013-02053

PATIENT
  Age: 59 Year
  Sex: Male

DRUGS (3)
  1. BACLOFEN INTRATHECAL [Suspect]
     Indication: PAIN
     Dosage: DAY
  2. DILAUDID [Suspect]
     Dosage: DAY
  3. BUPIVACAINE [Concomitant]

REACTIONS (6)
  - Lethargy [None]
  - Somnolence [None]
  - Vomiting [None]
  - Confusional state [None]
  - Pupillary disorder [None]
  - Lip disorder [None]
